FAERS Safety Report 23468023 (Version 4)
Quarter: 2024Q3

REPORT INFORMATION
  Report Type: Spontaneous
  Country: JP (occurrence: JP)
  Receive Date: 20240201
  Receipt Date: 20240711
  Transmission Date: 20241017
  Serious: Yes (Hospitalization, Other)
  Sender: MERCK
  Company Number: JP-MSD-M2024-02460

PATIENT
  Age: 8 Decade
  Sex: Female

DRUGS (5)
  1. KEYTRUDA [Suspect]
     Active Substance: PEMBROLIZUMAB
     Indication: Triple negative breast cancer
     Dosage: 200 MILLIGRAM, Q3W
     Route: 041
     Dates: start: 202308, end: 202312
  2. CARBOPLATIN [Concomitant]
     Active Substance: CARBOPLATIN
     Indication: Triple negative breast cancer
     Dosage: UNK
     Route: 041
     Dates: start: 202308, end: 202310
  3. PACLITAXEL [Concomitant]
     Active Substance: PACLITAXEL
     Indication: Triple negative breast cancer
     Dosage: UNK
     Route: 041
     Dates: start: 202308, end: 202310
  4. EPIRUBICIN HYDROCHLORIDE [Concomitant]
     Active Substance: EPIRUBICIN HYDROCHLORIDE
     Indication: Triple negative breast cancer
     Dosage: UNK
     Route: 041
     Dates: start: 202311, end: 202312
  5. CYCLOPHOSPHAMIDE [Concomitant]
     Active Substance: CYCLOPHOSPHAMIDE
     Indication: Triple negative breast cancer
     Dosage: UNK
     Route: 041
     Dates: start: 202310, end: 202312

REACTIONS (4)
  - Pneumonia aspiration [Recovered/Resolved]
  - C-reactive protein increased [Recovering/Resolving]
  - Immune-mediated hepatic disorder [Recovered/Resolved]
  - Oedema [Recovered/Resolved]

NARRATIVE: CASE EVENT DATE: 20231101
